FAERS Safety Report 17531805 (Version 2)
Quarter: 2020Q1

REPORT INFORMATION
  Report Type: Report from Study
  Country: US (occurrence: US)
  Receive Date: 20200311
  Receipt Date: 20200324
  Transmission Date: 20200409
  Serious: Yes (Hospitalization, Other)
  Sender: FDA-Public Use
  Company Number: US-EMD SERONO-9150056

PATIENT
  Sex: Male

DRUGS (2)
  1. REBIF [Suspect]
     Active Substance: INTERFERON BETA-1A
     Indication: MULTIPLE SCLEROSIS
     Route: 058
     Dates: start: 20050523, end: 20161001
  2. REBIF [Suspect]
     Active Substance: INTERFERON BETA-1A
     Route: 058
     Dates: start: 20170510, end: 20200127

REACTIONS (5)
  - Blood glucose increased [Unknown]
  - Osteomyelitis [Unknown]
  - Multiple sclerosis relapse [Unknown]
  - Wound infection [Unknown]
  - Necrosis [Unknown]

NARRATIVE: CASE EVENT DATE: 2019
